FAERS Safety Report 20619676 (Version 1)
Quarter: 2022Q1

REPORT INFORMATION
  Report Type: Spontaneous
  Country: IR (occurrence: IR)
  Receive Date: 20220322
  Receipt Date: 20220322
  Transmission Date: 20220424
  Serious: Yes (Hospitalization)
  Sender: FDA-Public Use
  Company Number: IR-LUPIN PHARMACEUTICALS INC.-2022-03918

PATIENT
  Age: 13 Year
  Sex: Male

DRUGS (16)
  1. LEFLUNOMIDE [Suspect]
     Active Substance: LEFLUNOMIDE
     Indication: Viral haemorrhagic cystitis
     Dosage: UNK
     Route: 065
  2. LEFLUNOMIDE [Suspect]
     Active Substance: LEFLUNOMIDE
     Indication: Polyomavirus viraemia
  3. VALGANCICLOVIR [Suspect]
     Active Substance: VALGANCICLOVIR
     Indication: Viral haemorrhagic cystitis
     Dosage: 750 MILLIGRAM, QD
     Route: 048
  4. VALGANCICLOVIR [Suspect]
     Active Substance: VALGANCICLOVIR
     Indication: Polyomavirus viraemia
  5. HUMAN IMMUNOGLOBULIN G [Suspect]
     Active Substance: HUMAN IMMUNOGLOBULIN G
     Indication: Viral haemorrhagic cystitis
     Dosage: UNK
     Route: 042
  6. HUMAN IMMUNOGLOBULIN G [Suspect]
     Active Substance: HUMAN IMMUNOGLOBULIN G
     Indication: Polyomavirus viraemia
  7. SALINE [Suspect]
     Active Substance: SODIUM CHLORIDE
     Indication: Viral haemorrhagic cystitis
     Dosage: BLADDER IRRIGATED WITH THE CONTINUOUS INFUSION OF SODIUM-CHLORIDE [SALINE]
     Route: 065
  8. SALINE [Suspect]
     Active Substance: SODIUM CHLORIDE
     Indication: Polyomavirus viraemia
  9. ALUM [Suspect]
     Active Substance: POTASSIUM ALUM
     Indication: Viral haemorrhagic cystitis
     Dosage: INTRAVESICAL ALUM [ALUMINUM AMMONIUM SULFATE OR ALUMINUM POTASSIUM SULFATE; PREPARED UNDER THE SUPER
     Route: 043
  10. ALUM [Suspect]
     Active Substance: POTASSIUM ALUM
     Indication: Polyomavirus viraemia
  11. BUSULFAN [Concomitant]
     Active Substance: BUSULFAN
     Indication: Bone marrow conditioning regimen
     Dosage: UNK
     Route: 065
  12. CYCLOPHOSPHAMIDE [Concomitant]
     Active Substance: CYCLOPHOSPHAMIDE
     Indication: Bone marrow conditioning regimen
     Dosage: UNK
     Route: 065
  13. MELPHALAN [Concomitant]
     Active Substance: MELPHALAN
     Indication: Bone marrow conditioning regimen
     Dosage: UNK
     Route: 065
  14. CYCLOSPORINE [Concomitant]
     Active Substance: CYCLOSPORINE
     Indication: Prophylaxis against graft versus host disease
     Dosage: 50 MILLIGRAM, BID
     Route: 048
  15. ALPROSTADIL [Concomitant]
     Active Substance: ALPROSTADIL
     Indication: Viral haemorrhagic cystitis
     Dosage: ALPROSTADIL SOLUTION WAS PREPARED BY THE CONSTITUTION OF 250MG ALPROSTADIL IN 50ML SODIUM-CHLORIDE [
     Route: 043
  16. ALPROSTADIL [Concomitant]
     Active Substance: ALPROSTADIL
     Indication: Polyomavirus viraemia

REACTIONS (2)
  - Drug ineffective for unapproved indication [Unknown]
  - Off label use [Unknown]
